FAERS Safety Report 9888046 (Version 2)
Quarter: 2014Q2

REPORT INFORMATION
  Report Type: Spontaneous
  Country: FR (occurrence: FR)
  Receive Date: 20140211
  Receipt Date: 20140626
  Transmission Date: 20141212
  Serious: Yes (Hospitalization, Other)
  Sender: FDA-Public Use
  Company Number: FR-AMGEN-FRASP2014009286

PATIENT
  Age: 69 Year
  Sex: Female

DRUGS (5)
  1. ENBREL [Suspect]
     Indication: PSORIASIS
     Dosage: 50 MG, WEEKLY
     Route: 058
     Dates: start: 201101
  2. ENBREL [Suspect]
     Indication: ANKYLOSING SPONDYLITIS
  3. VOLTARENE                          /00372302/ [Concomitant]
     Dosage: 150 MG, 2X/DAY
     Route: 048
  4. EUTHYRAL [Concomitant]
     Dosage: UNK
  5. LUCENTIS [Concomitant]
     Dosage: UNK

REACTIONS (2)
  - Pyelonephritis acute [Recovered/Resolved]
  - Escherichia sepsis [Recovered/Resolved]
